FAERS Safety Report 9536050 (Version 2)
Quarter: 2013Q4

REPORT INFORMATION
  Report Type: Spontaneous
  Country: US (occurrence: US)
  Receive Date: 20130919
  Receipt Date: 20131206
  Transmission Date: 20140711
  Serious: No
  Sender: FDA-Public Use
  Company Number: US-PFIZER INC-2013267458

PATIENT
  Age: 55 Year
  Sex: Female

DRUGS (4)
  1. LEVOXYL [Suspect]
     Indication: HYPOTHYROIDISM
     Dosage: 88 UG, DAILY
     Route: 048
     Dates: start: 201305, end: 201305
  2. LEVOXYL [Suspect]
     Dosage: 100 UG, UNK
  3. CALCIUM [Concomitant]
     Dosage: UNK
  4. VITAMIN D [Concomitant]
     Dosage: UNK

REACTIONS (2)
  - Skin odour abnormal [Recovered/Resolved]
  - Dysgeusia [Unknown]
